FAERS Safety Report 13528917 (Version 2)
Quarter: 2018Q2

REPORT INFORMATION
  Report Type: Report from Study
  Country: CA (occurrence: CA)
  Receive Date: 20170509
  Receipt Date: 20180524
  Transmission Date: 20180711
  Serious: Yes (Hospitalization)
  Sender: FDA-Public Use
  Company Number: CA-ACTELION-A-US2017-153401

PATIENT
  Age: 61 Year
  Sex: Female

DRUGS (7)
  1. OPSUMIT [Suspect]
     Active Substance: MACITENTAN
     Indication: PULMONARY ARTERIAL HYPERTENSION
     Dosage: 10 MG, UNK
     Route: 048
     Dates: start: 20171115
  2. ADCIRCA [Concomitant]
     Active Substance: TADALAFIL
  3. REMODULIN [Suspect]
     Active Substance: TREPROSTINIL
     Dosage: UNK
     Route: 042
  4. WARFARIN [Concomitant]
     Active Substance: WARFARIN
  5. FUROSEMIDE. [Concomitant]
     Active Substance: FUROSEMIDE
  6. PULMICORT TURBUHALER [Concomitant]
     Active Substance: BUDESONIDE
  7. REMODULIN [Suspect]
     Active Substance: TREPROSTINIL
     Indication: PRODUCT USED FOR UNKNOWN INDICATION
     Dosage: UNK
     Route: 058

REACTIONS (5)
  - Fatigue [Not Recovered/Not Resolved]
  - Catheter site pain [Recovered/Resolved]
  - Hypotension [Recovered/Resolved]
  - Haematochezia [Not Recovered/Not Resolved]
  - Internal haemorrhage [Not Recovered/Not Resolved]

NARRATIVE: CASE EVENT DATE: 20171225
